FAERS Safety Report 9632163 (Version 1)
Quarter: 2013Q4

REPORT INFORMATION
  Report Type: Spontaneous
  Country: US (occurrence: None)
  Receive Date: 20131017
  Receipt Date: 20131017
  Transmission Date: 20140711
  Serious: No
  Sender: FDA-Public Use
  Company Number: None

PATIENT
  Age: 63 Year
  Sex: Female

DRUGS (1)
  1. CLONAZEPAM [Suspect]
     Indication: ANXIETY DISORDER
     Dosage: TID PRN, PO
     Route: 048
     Dates: start: 20130930, end: 20131015

REACTIONS (7)
  - Nausea [None]
  - Constipation [None]
  - Palpitations [None]
  - Dizziness [None]
  - Fatigue [None]
  - Confusional state [None]
  - Abdominal discomfort [None]
